FAERS Safety Report 9254083 (Version 3)
Quarter: 2013Q3

REPORT INFORMATION
  Report Type: Spontaneous
  Country: US (occurrence: None)
  Receive Date: 20130422
  Receipt Date: 20130717
  Transmission Date: 20140515
  Serious: Yes (Hospitalization, Disabling, Other)
  Sender: FDA-Public Use
  Company Number: ACO_35521_2013

PATIENT
  Age: 60 Year
  Sex: Female
  Weight: 54.4 kg

DRUGS (8)
  1. AMPYRA [Suspect]
     Indication: MULTIPLE SCLEROSIS
     Route: 048
     Dates: end: 201301
  2. CYMBALTA (DULOXETINE HYDROCHLORIDE) [Concomitant]
  3. XANAX (ALPRAZOLAM) [Concomitant]
  4. FISH OIL (FISH OIL) [Concomitant]
  5. BENADRYL (DIPHENHYDRAMINE HYDROCHLORIDE) [Concomitant]
  6. CALCIUM (CALCIUM) [Concomitant]
  7. VITAMIN D3 (VITAMIN D3) [Concomitant]
  8. VICODIN (HYDROCODONE BITARTRATE, PARACETAMOL) [Concomitant]

REACTIONS (9)
  - Bladder neoplasm [None]
  - Cystitis [None]
  - Dysuria [None]
  - Haemorrhage [None]
  - Hypotension [None]
  - Vesicoureteric reflux [None]
  - Abdominal distension [None]
  - Movement disorder [None]
  - Urinary bladder haemorrhage [None]
